FAERS Safety Report 10441601 (Version 1)
Quarter: 2014Q3

REPORT INFORMATION
  Report Type: Spontaneous
  Country: JP (occurrence: None)
  Receive Date: 20140905
  Receipt Date: 20140905
  Transmission Date: 20150326
  Serious: Yes (Other)
  Sender: FDA-Public Use
  Company Number: JP-20130060

PATIENT
  Age: 7 Decade
  Sex: Female

DRUGS (3)
  1. GELPART (GELATIN), UNKNOWN [Concomitant]
     Active Substance: GELATIN
  2. LIPIODOL ULTRA FLUID [Suspect]
     Active Substance: ETHIODIZED OIL
     Indication: PRODUCT USED FOR UNKNOWN INDICATION
     Route: 013
  3. CISPLATIN. [Concomitant]
     Active Substance: CISPLATIN

REACTIONS (3)
  - Disseminated intravascular coagulation [None]
  - Off label use [None]
  - Tumour lysis syndrome [None]
